FAERS Safety Report 4357484-7 (Version None)
Quarter: 2004Q2

REPORT INFORMATION
  Report Type: 
  Country: None (occurrence: None)
  Receive Date: 20040511
  Receipt Date: 20040511
  Transmission Date: 20050107
  Serious: No
  Sender: FDA-Public Use
  Company Number: None

PATIENT
  Age: 38 Year
  Sex: Female
  Weight: 89 kg

DRUGS (7)
  1. CARBOPLATIN [Suspect]
     Indication: ENDOMETRIAL CANCER
     Dosage: 650 MG IV (CYCLE 3 OF CHEMOTHERAPY COURSE)
     Route: 042
     Dates: start: 20030815, end: 20030925
  2. CARBOPLATIN [Suspect]
     Indication: OVARIAN CANCER
     Dosage: 650 MG IV (CYCLE 3 OF CHEMOTHERAPY COURSE)
     Route: 042
     Dates: start: 20030815, end: 20030925
  3. ORDANSETRON [Concomitant]
  4. DEXAMETHASONE [Concomitant]
  5. ACETAMINOPHEN W/ CODEINE [Concomitant]
  6. MS CONTIN [Concomitant]
  7. MEGESTROL [Concomitant]

REACTIONS (3)
  - CHEST PAIN [None]
  - HYPERSENSITIVITY [None]
  - RASH GENERALISED [None]
